APPROVED DRUG PRODUCT: FOSAMPRENAVIR CALCIUM
Active Ingredient: FOSAMPRENAVIR CALCIUM
Strength: EQ 700MG BASE
Dosage Form/Route: TABLET;ORAL
Application: A204060 | Product #001 | TE Code: AB
Applicant: MYLAN PHARMACEUTICALS INC
Approved: Apr 15, 2016 | RLD: No | RS: Yes | Type: RX